FAERS Safety Report 8583363-5 (Version None)
Quarter: 2012Q3

REPORT INFORMATION
  Report Type: 
  Country: None (occurrence: None)
  Receive Date: 20120809
  Receipt Date: 20120806
  Transmission Date: 20120928
  Serious: Yes (Other)
  Sender: FDA-Public Use
  Company Number: US-ROCHE-782530

PATIENT
  Sex: Female
  Weight: 73.548 kg

DRUGS (3)
  1. ADVIL [Concomitant]
  2. ACCUTANE [Suspect]
     Indication: ACNE
     Route: 065
     Dates: start: 20001228, end: 20020101
  3. ORTHO TRI-CYCLEN [Concomitant]

REACTIONS (10)
  - RECTAL HAEMORRHAGE [None]
  - INFLAMMATORY BOWEL DISEASE [None]
  - DEPRESSION [None]
  - DRY SKIN [None]
  - HAEMORRHOIDS [None]
  - LIVER DISORDER [None]
  - CHEILITIS [None]
  - ABDOMINAL PAIN [None]
  - HYPERGLYCAEMIA [None]
  - COLITIS ULCERATIVE [None]
